FAERS Safety Report 17078233 (Version 2)
Quarter: 2020Q1

REPORT INFORMATION
  Report Type: Report from Study
  Country: CA (occurrence: CA)
  Receive Date: 20191126
  Receipt Date: 20200102
  Transmission Date: 20200409
  Serious: Yes (Hospitalization)
  Sender: FDA-Public Use
  Company Number: CA-EXELIXIS-XL18419023492

PATIENT
  Age: 68 Year
  Sex: Male
  Weight: 54.7 kg

DRUGS (16)
  1. BISACODYL. [Concomitant]
     Active Substance: BISACODYL
  2. DUTASTERIDE. [Concomitant]
     Active Substance: DUTASTERIDE
  3. BLINDED XL184 [Suspect]
     Active Substance: CABOZANTINIB
     Dosage: 100 OR 40 MG
  4. SENNA [Concomitant]
     Active Substance: SENNA LEAF\SENNOSIDES\SENNOSIDES A AND B
  5. RANITIDINE. [Concomitant]
     Active Substance: RANITIDINE
  6. TYLENOL EXTRA STRENGTH [Concomitant]
     Active Substance: ACETAMINOPHEN
  7. BLINDED XL184 [Suspect]
     Active Substance: CABOZANTINIB
     Indication: MEDULLARY THYROID CANCER
     Dosage: 140 OR 60 MG
     Route: 048
     Dates: start: 20190703
  8. BLINDED XL184 [Suspect]
     Active Substance: CABOZANTINIB
     Dosage: 100 OR 40 MG
  9. VANDETANIB. [Concomitant]
     Active Substance: VANDETANIB
  10. BACLOFEN. [Concomitant]
     Active Substance: BACLOFEN
  11. GABAPENTIN. [Concomitant]
     Active Substance: GABAPENTIN
  12. BLINDED XL184 [Suspect]
     Active Substance: CABOZANTINIB
     Indication: MEDULLARY THYROID CANCER
     Dosage: 140 OR 60 MG
     Route: 048
     Dates: start: 20190703
  13. M-ESLON [Concomitant]
     Active Substance: MORPHINE SULFATE
  14. MAXERAN [Concomitant]
     Active Substance: METOCLOPRAMIDE HYDROCHLORIDE
  15. MIRTAZAPINE. [Concomitant]
     Active Substance: MIRTAZAPINE
  16. SERC [Concomitant]

REACTIONS (2)
  - Pneumonia [Recovered/Resolved]
  - Malignant neoplasm progression [Not Recovered/Not Resolved]

NARRATIVE: CASE EVENT DATE: 20190826
